FAERS Safety Report 4750111-6 (Version None)
Quarter: 2005Q3

REPORT INFORMATION
  Report Type: 
  Country: None (occurrence: None)
  Receive Date: 20050819
  Receipt Date: 20050810
  Transmission Date: 20060218
  Serious: Yes (Life-Threatening)
  Sender: FDA-Public Use
  Company Number: MK200508-0084-1

PATIENT
  Sex: Female

DRUGS (1)
  1. OPTIRAY 320 [Suspect]
     Indication: COMPUTERISED TOMOGRAM ABDOMEN
     Dosage: 100 ML, ONE TIME, IV
     Route: 042
     Dates: start: 20050701, end: 20050701

REACTIONS (3)
  - CARDIO-RESPIRATORY ARREST [None]
  - LOSS OF CONSCIOUSNESS [None]
  - WRONG TECHNIQUE IN DRUG USAGE PROCESS [None]
